FAERS Safety Report 6519618-5 (Version None)
Quarter: 2009Q4

REPORT INFORMATION
  Report Type: 
  Country: None (occurrence: None)
  Receive Date: 20091228
  Receipt Date: 20091215
  Transmission Date: 20100525
  Serious: Yes (Other)
  Sender: FDA-Public Use
  Company Number: JP-ABBOTT-09P-087-0616211-00

PATIENT
  Age: 38 Year
  Sex: Female

DRUGS (2)
  1. LEUPLIN SR FOR INJECTION 11.25 MG [Suspect]
     Indication: BREAST CANCER
     Route: 058
     Dates: start: 20071127, end: 20090825
  2. TAMOXIFEN CITRATE [Concomitant]
     Indication: BREAST CANCER
     Route: 048

REACTIONS (4)
  - BLOOD TRIGLYCERIDES INCREASED [None]
  - BLOOD UREA ABNORMAL [None]
  - HEPATIC NEOPLASM MALIGNANT [None]
  - INJECTION SITE INDURATION [None]
